FAERS Safety Report 16287017 (Version 1)
Quarter: 2019Q2

REPORT INFORMATION
  Report Type: Spontaneous
  Country: MO (occurrence: MO)
  Receive Date: 20190508
  Receipt Date: 20190508
  Transmission Date: 20190711
  Serious: Yes (Death)
  Sender: FDA-Public Use
  Company Number: MO-ROCHE-2307856

PATIENT
  Age: 64 Year
  Sex: Male

DRUGS (3)
  1. ETOPOSIDE. [Suspect]
     Active Substance: ETOPOSIDE
     Indication: SMALL CELL LUNG CANCER
     Route: 042
     Dates: start: 20190125, end: 20190215
  2. OXALIPLATIN. [Suspect]
     Active Substance: OXALIPLATIN
     Indication: SMALL CELL LUNG CANCER
     Route: 042
     Dates: start: 20190125, end: 20190215
  3. TECENTRIQ [Suspect]
     Active Substance: ATEZOLIZUMAB
     Indication: SMALL CELL LUNG CANCER
     Route: 041
     Dates: start: 20190125

REACTIONS (4)
  - Off label use [Fatal]
  - Acute kidney injury [Fatal]
  - Anuria [Fatal]
  - Intentional product use issue [Fatal]

NARRATIVE: CASE EVENT DATE: 20190304
